FAERS Safety Report 6715725-2 (Version None)
Quarter: 2010Q2

REPORT INFORMATION
  Report Type: 
  Country: None (occurrence: None)
  Receive Date: 20100507
  Receipt Date: 20100428
  Transmission Date: 20101027
  Serious: Yes (Hospitalization)
  Sender: FDA-Public Use
  Company Number: CN-JNJFOC-20100500382

PATIENT

DRUGS (3)
  1. REMICADE [Suspect]
     Indication: CROHN'S DISEASE
     Dosage: AT WEEK 2
     Route: 042
  2. REMICADE [Suspect]
     Dosage: AT WEEK 6
     Route: 042
  3. REMICADE [Suspect]
     Dosage: AT WEEK 1
     Route: 042

REACTIONS (1)
  - INTESTINAL PERFORATION [None]
